FAERS Safety Report 4704751-0 (Version None)
Quarter: 2005Q2

REPORT INFORMATION
  Report Type: 
  Country: None (occurrence: None)
  Receive Date: 20050630
  Receipt Date: 20050616
  Transmission Date: 20051028
  Serious: Yes (Hospitalization)
  Sender: FDA-Public Use
  Company Number: 215350

PATIENT
  Age: 1 Year
  Sex: Male

DRUGS (3)
  1. NUTROPIN AQ [Suspect]
     Indication: GROWTH HORMONE DEFICIENCY
     Dosage: QD
     Dates: start: 20050610
  2. PREVACID [Concomitant]
  3. MIRALAX [Concomitant]

REACTIONS (1)
  - INJECTION SITE URTICARIA [None]
